FAERS Safety Report 6385632-6 (Version None)
Quarter: 2009Q4

REPORT INFORMATION
  Report Type: 
  Country: None (occurrence: None)
  Receive Date: 20091002
  Receipt Date: 20081010
  Transmission Date: 20100525
  Serious: No
  Sender: FDA-Public Use
  Company Number: US-ASTRAZENECA-2008UW22339

PATIENT
  Sex: Female

DRUGS (2)
  1. ARIMIDEX [Suspect]
     Route: 048
     Dates: start: 20070401
  2. HUMIRA [Interacting]
     Indication: RHEUMATOID ARTHRITIS
     Dates: start: 20020101, end: 20070501

REACTIONS (4)
  - ARTHRALGIA [None]
  - DIZZINESS [None]
  - DRUG INTERACTION [None]
  - NAUSEA [None]
